FAERS Safety Report 8180588-8 (Version None)
Quarter: 2012Q1

REPORT INFORMATION
  Report Type: 
  Country: None (occurrence: None)
  Receive Date: 20120302
  Receipt Date: 20120222
  Transmission Date: 20120608
  Serious: Yes (Other)
  Sender: FDA-Public Use
  Company Number: KZ-JNJFOC-20120104588

PATIENT
  Age: 24 Year
  Sex: Male

DRUGS (3)
  1. TOPAMAX [Suspect]
     Indication: EPILEPSY
     Route: 048
     Dates: start: 20111001
  2. TOPAMAX [Suspect]
     Route: 048
  3. TOPAMAX [Suspect]
     Route: 048
     Dates: start: 20090701

REACTIONS (4)
  - EPILEPSY [None]
  - DECREASED APPETITE [None]
  - WEIGHT DECREASED [None]
  - PANCREATITIS ACUTE [None]
